FAERS Safety Report 8524420-9 (Version None)
Quarter: 2012Q3

REPORT INFORMATION
  Report Type: 
  Country: None (occurrence: None)
  Receive Date: 20120720
  Receipt Date: 20120713
  Transmission Date: 20120928
  Serious: Yes (Hospitalization)
  Sender: FDA-Public Use
  Company Number: US-B.I. PHARMACEUTICALS,INC./RIDGEFIELD-2012-BP-03889BP

PATIENT
  Sex: Male

DRUGS (6)
  1. PRADAXA [Suspect]
     Indication: ATRIAL FIBRILLATION
     Dosage: 300 MG
     Route: 048
     Dates: start: 20120101, end: 20120301
  2. AMIODARONE HCL [Concomitant]
     Indication: ATRIAL FIBRILLATION
     Route: 048
  3. RAMIPRIL [Concomitant]
     Indication: CARDIAC DISORDER
     Route: 048
  4. PRADAXA [Suspect]
     Dosage: 300 MG
     Route: 048
     Dates: start: 20120301, end: 20120708
  5. ASPIRIN [Concomitant]
     Indication: ANTICOAGULANT THERAPY
     Dosage: 81 MG
     Route: 048
  6. MEDICATION NOT FURTHER SPECIFIED [Concomitant]

REACTIONS (8)
  - RENAL DISORDER [None]
  - CONJUNCTIVAL HAEMORRHAGE [None]
  - RECTAL HAEMORRHAGE [None]
  - BLEEDING TIME PROLONGED [None]
  - BLOOD URINE PRESENT [None]
  - CONTUSION [None]
  - LARGE INTESTINAL HAEMORRHAGE [None]
  - RASH MACULAR [None]
